APPROVED DRUG PRODUCT: CLARITIN
Active Ingredient: LORATADINE
Strength: 10MG
Dosage Form/Route: TABLET;ORAL
Application: N019658 | Product #002
Applicant: BAYER HEALTHCARE LLC
Approved: Nov 27, 2002 | RLD: Yes | RS: Yes | Type: OTC